FAERS Safety Report 9684824 (Version 2)
Quarter: 2013Q4

REPORT INFORMATION
  Report Type: Report from Study
  Country: NL (occurrence: NL)
  Receive Date: 20131112
  Receipt Date: 20131226
  Transmission Date: 20140711
  Serious: Yes (Hospitalization, Other)
  Sender: FDA-Public Use
  Company Number: PHHY2013NL128292

PATIENT
  Sex: Female

DRUGS (10)
  1. ACLASTA [Suspect]
     Indication: OSTEOPOROSIS
     Dosage: 5 MG (ONCE EVERY 52 WEEKS)
     Route: 042
     Dates: start: 20111004
  2. ACLASTA [Suspect]
     Dosage: 5 MG (ONCE EVERY 52 WEEKS)
     Route: 042
     Dates: start: 20121012
  3. ACLASTA [Suspect]
     Dosage: 5 MG (ONCE EVERY 52 WEEKS)
     Route: 042
     Dates: start: 20131111
  4. ACENOCOUMAROL [Concomitant]
     Dosage: VIA THROMBOSIS SERVICE
  5. SELOKEEN [Concomitant]
     Dosage: 50 MG, QD
  6. OMEPRAZOLE [Concomitant]
     Dosage: 40 MG, QD
  7. THYRAX [Concomitant]
     Dosage: 125 UG, QD
  8. PARACETAMOL [Concomitant]
  9. HALDOL [Concomitant]
     Dosage: IF NECESSARY
  10. LACTULOSE [Concomitant]

REACTIONS (3)
  - Mental impairment [Unknown]
  - Cerebrovascular accident [Recovering/Resolving]
  - Cognitive disorder [Unknown]
